FAERS Safety Report 5745879-6 (Version None)
Quarter: 2008Q2

REPORT INFORMATION
  Report Type: 
  Country: None (occurrence: None)
  Receive Date: 20080520
  Receipt Date: 20080502
  Transmission Date: 20081010
  Serious: Yes (Other)
  Sender: FDA-Public Use
  Company Number: S08-GER-01769-01

PATIENT
  Age: 31 Year
  Sex: Female
  Weight: 68 kg

DRUGS (3)
  1. CITALOPRAM HYDROBROMIDE [Suspect]
     Indication: DEPRESSION
     Dosage: 1 TABLET QD PO
     Route: 048
     Dates: start: 20070628, end: 20070701
  2. IBUPROFEN [Concomitant]
  3. ASTOSIL (ISOPROMETHAZINE HYDROCHLORIDE) [Concomitant]

REACTIONS (1)
  - THROMBOCYTOPENIA [None]
